FAERS Safety Report 7955259-0 (Version None)
Quarter: 2011Q4

REPORT INFORMATION
  Report Type: 
  Country: None (occurrence: None)
  Receive Date: 20111202
  Receipt Date: 20111128
  Transmission Date: 20120403
  Serious: Yes (Other)
  Sender: FDA-Public Use
  Company Number: BR-ABBOTT-11P-020-0878239-00

PATIENT
  Sex: Female
  Weight: 51 kg

DRUGS (6)
  1. OMEPRAZOLE [Concomitant]
     Indication: PROPHYLAXIS
  2. HUMIRA [Suspect]
     Indication: CROHN'S DISEASE
     Route: 058
  3. AVADEN [Concomitant]
     Indication: HORMONE REPLACEMENT THERAPY
     Dosage: 1 MG + 0.025 MG
     Route: 048
  4. FOLIC ACID [Concomitant]
     Indication: ANAEMIA
     Dosage: 10MG DAILY
     Route: 048
     Dates: start: 20070101
  5. OMEPRAZOLE [Concomitant]
     Indication: GASTRIC DISORDER
     Dosage: 80MG DAILY
     Route: 048
     Dates: start: 20030101
  6. CITALOPRAM HYDROBROMIDE [Concomitant]
     Indication: DEPRESSION
     Route: 048
     Dates: start: 20070101

REACTIONS (4)
  - INTESTINAL STENOSIS [None]
  - DEPRESSION [None]
  - INFECTION [None]
  - ANAEMIA [None]
